FAERS Safety Report 12926860 (Version 2)
Quarter: 2016Q4

REPORT INFORMATION
  Report Type: Report from Study
  Country: US (occurrence: US)
  Receive Date: 20161108
  Receipt Date: 20161123
  Transmission Date: 20170207
  Serious: Yes (Hospitalization, Other)
  Sender: FDA-Public Use
  Company Number: US-UCBSA-2016041938

PATIENT
  Age: 51 Year
  Sex: Male
  Weight: 91 kg

DRUGS (5)
  1. DILANTIN [Concomitant]
     Active Substance: PHENYTOIN
     Indication: SEIZURE
     Dosage: UNK
     Dates: end: 2016
  2. LEVETIRACETAM. [Suspect]
     Active Substance: LEVETIRACETAM
     Indication: EPILEPSY
     Dosage: HALF TABLET A DAY FOR A WEEK
     Route: 048
     Dates: start: 201606, end: 2016
  3. LEVETIRACETAM. [Suspect]
     Active Substance: LEVETIRACETAM
     Dosage: 1 DF, ONCE DAILY (QD)
     Dates: start: 2016
  4. LEVETIRACETAM. [Suspect]
     Active Substance: LEVETIRACETAM
     Dosage: ? TABLET TWICE DAY FOR A WEEK
     Dates: start: 2016, end: 2016
  5. GABAPENTIN. [Concomitant]
     Active Substance: GABAPENTIN
     Indication: PRODUCT USED FOR UNKNOWN INDICATION
     Dosage: UNK

REACTIONS (5)
  - Off label use [Unknown]
  - Limb injury [Unknown]
  - Cellulitis [Recovering/Resolving]
  - Thrombosis [Recovering/Resolving]
  - Cerebrovascular accident [Recovering/Resolving]

NARRATIVE: CASE EVENT DATE: 2016
